FAERS Safety Report 9657355 (Version 2)
Quarter: 2013Q4

REPORT INFORMATION
  Report Type: Spontaneous
  Country: FR (occurrence: FR)
  Receive Date: 20131030
  Receipt Date: 20131112
  Transmission Date: 20140711
  Serious: Yes (Hospitalization)
  Sender: FDA-Public Use
  Company Number: FR-GLAXOSMITHKLINE-B0935543A

PATIENT
  Age: 43 Year
  Sex: Female

DRUGS (4)
  1. ZOPHREN [Suspect]
     Indication: PREMEDICATION
     Dosage: 8MG SINGLE DOSE
     Route: 042
     Dates: start: 20131007, end: 20131007
  2. CARBOPLATINE [Suspect]
     Indication: ADENOCARCINOMA
     Dosage: 535MG CYCLIC
     Route: 042
     Dates: start: 20131007, end: 20131007
  3. PACLITAXEL [Suspect]
     Indication: ADENOCARCINOMA
     Dosage: 255MG CYCLIC
     Route: 042
     Dates: start: 20131007, end: 20131007
  4. SOLUMEDROL [Suspect]
     Indication: PREMEDICATION
     Dosage: 120MG SINGLE DOSE
     Route: 042
     Dates: start: 20131007, end: 20131007

REACTIONS (5)
  - Nausea [Recovered/Resolved]
  - Tachycardia [Recovered/Resolved]
  - Diarrhoea [Recovered/Resolved]
  - Abdominal pain [Recovered/Resolved]
  - Pruritus [Unknown]
